FAERS Safety Report 6297136-X (Version None)
Quarter: 2009Q3

REPORT INFORMATION
  Report Type: 
  Country: None (occurrence: None)
  Receive Date: 20090724
  Receipt Date: 20090429
  Transmission Date: 20100115
  Serious: Yes (Hospitalization)
  Sender: FDA-Public Use
  Company Number: 2008BI032000

PATIENT
  Age: 48 Year
  Sex: Male

DRUGS (3)
  1. TYSABRI [Suspect]
     Indication: MULTIPLE SCLEROSIS
     Dosage: 30 MG; QM; IV
     Route: 042
     Dates: start: 20061227
  2. AVONEX [Concomitant]
  3. LYOPHILIZED [Concomitant]

REACTIONS (1)
  - PNEUMONIA [None]
